FAERS Safety Report 11459537 (Version 1)
Quarter: 2015Q3

REPORT INFORMATION
  Report Type: Spontaneous
  Country: US (occurrence: US)
  Receive Date: 20150904
  Receipt Date: 20150904
  Transmission Date: 20151125
  Serious: No
  Sender: FDA-Public Use
  Company Number: US-TARO-2015TAR00011

PATIENT
  Age: 6 Year
  Sex: Male
  Weight: 22.68 kg

DRUGS (1)
  1. WARFARIN SODIUM TABLETS USP 7.5MG [Suspect]
     Active Substance: WARFARIN SODIUM
     Indication: HEART VALVE REPLACEMENT
     Dosage: 7.5 MG, 1X/DAY
     Route: 048
     Dates: start: 201008, end: 20150103

REACTIONS (3)
  - International normalised ratio decreased [Recovered/Resolved]
  - International normalised ratio increased [Recovered/Resolved]
  - Product quality issue [Not Recovered/Not Resolved]

NARRATIVE: CASE EVENT DATE: 20141105
